FAERS Safety Report 16786010 (Version 1)
Quarter: 2019Q3

REPORT INFORMATION
  Report Type: Spontaneous
  Country: CL (occurrence: CL)
  Receive Date: 20190909
  Receipt Date: 20190909
  Transmission Date: 20191005
  Serious: Yes (Death)
  Sender: FDA-Public Use
  Company Number: CL-PFIZER INC-2019387066

PATIENT

DRUGS (3)
  1. ZAVICEFTA [Suspect]
     Active Substance: AVIBACTAM SODIUM\CEFTAZIDIME
     Dosage: UNK (IN FULL DOSE)
  2. MEROPENEM. [Suspect]
     Active Substance: MEROPENEM
     Dosage: UNK
  3. AMIKACINA [AMIKACIN] [Suspect]
     Active Substance: AMIKACIN
     Dosage: UNK (NEBULIZED)

REACTIONS (1)
  - Multiple organ dysfunction syndrome [Fatal]
